FAERS Safety Report 5359789-X (Version None)
Quarter: 2007Q2

REPORT INFORMATION
  Report Type: 
  Country: None (occurrence: None)
  Receive Date: 20070530
  Receipt Date: 20070317
  Transmission Date: 20071010
  Serious: No
  Sender: FDA-Public Use
  Company Number: 2007PV031930

PATIENT
  Age: 52 Year
  Sex: Female
  Weight: 116.5744 kg

DRUGS (4)
  1. BYETTA [Suspect]
     Indication: DIABETES MELLITUS NON-INSULIN-DEPENDENT
     Dosage: 5 MCG; BID; SC
     Route: 058
     Dates: start: 20070314
  2. ACTOS [Suspect]
     Indication: DRUG USE FOR UNKNOWN INDICATION
  3. LANTUS [Concomitant]
  4. GLUCOPHAGE [Concomitant]

REACTIONS (3)
  - NAUSEA [None]
  - NEPHROLITHIASIS [None]
  - WEIGHT DECREASED [None]
